FAERS Safety Report 5009611-6 (Version None)
Quarter: 2006Q2

REPORT INFORMATION
  Report Type: 
  Country: None (occurrence: None)
  Receive Date: 20060522
  Receipt Date: 20060509
  Transmission Date: 20061013
  Serious: Yes (Other)
  Sender: FDA-Public Use
  Company Number: 221934

PATIENT
  Age: 43 Year
  Sex: Female

DRUGS (1)
  1. AVASTIN [Suspect]
     Indication: OVARIAN CANCER
     Dosage: 15 MG/KG, Q3W,
     Dates: start: 20050912, end: 20051228

REACTIONS (4)
  - DERMATITIS [None]
  - EOSINOPHILIA [None]
  - NEPHRITIS INTERSTITIAL [None]
  - RENAL FAILURE [None]
